FAERS Safety Report 8351407-1 (Version None)
Quarter: 2012Q2

REPORT INFORMATION
  Report Type: 
  Country: None (occurrence: None)
  Receive Date: 20120510
  Receipt Date: 20120502
  Transmission Date: 20120825
  Serious: Yes (Other)
  Sender: FDA-Public Use
  Company Number: US-ASTRAZENECA-2012SE28285

PATIENT
  Age: 40 Year
  Sex: Female

DRUGS (3)
  1. NEXAVAR [Concomitant]
  2. VANDETANIB [Suspect]
     Indication: THYROID CANCER
     Route: 048
  3. SUTENT [Concomitant]

REACTIONS (4)
  - BRAIN NEOPLASM MALIGNANT [None]
  - PAIN [None]
  - NEOPLASM PROGRESSION [None]
  - BLOOD CALCITONIN INCREASED [None]
